FAERS Safety Report 10989277 (Version 3)
Quarter: 2015Q2

REPORT INFORMATION
  Report Type: Spontaneous
  Country: US (occurrence: US)
  Receive Date: 20150406
  Receipt Date: 20150416
  Transmission Date: 20150821
  Serious: No
  Sender: FDA-Public Use
  Company Number: US-ASTRAZENECA-2015SE31568

PATIENT
  Age: 25677 Day
  Sex: Female

DRUGS (4)
  1. AMLODIPINE [Suspect]
     Active Substance: AMLODIPINE BESYLATE
     Dosage: NON AZ PRODUCT
     Route: 065
  2. GEMFIBROZIL. [Suspect]
     Active Substance: GEMFIBROZIL
     Dosage: NON AZ PRODUCT
     Route: 065
  3. VITAMIN [Concomitant]
     Active Substance: VITAMINS
  4. VIMOVO [Suspect]
     Active Substance: ESOMEPRAZOLE MAGNESIUM\NAPROXEN
     Indication: MUSCLE STRAIN
     Route: 048
     Dates: start: 20150317

REACTIONS (3)
  - Diarrhoea [Recovered/Resolved]
  - Abdominal discomfort [Recovered/Resolved]
  - Intentional product use issue [Recovered/Resolved]

NARRATIVE: CASE EVENT DATE: 20150317
